FAERS Safety Report 11926862 (Version 1)
Quarter: 2016Q1

REPORT INFORMATION
  Report Type: Spontaneous
  Country: US (occurrence: None)
  Receive Date: 20160115
  Receipt Date: 20160115
  Transmission Date: 20160526
  Serious: Yes (Other)
  Sender: FDA-Public Use
  Company Number: None

PATIENT
  Age: 76 Year
  Sex: Male

DRUGS (1)
  1. TACROLIMUS 1MG ACCORD [Suspect]
     Active Substance: TACROLIMUS
     Route: 048
     Dates: start: 20150923, end: 20151222

REACTIONS (2)
  - Drug level increased [None]
  - Product substitution issue [None]

NARRATIVE: CASE EVENT DATE: 20150923
